FAERS Safety Report 6900233-6 (Version None)
Quarter: 2010Q3

REPORT INFORMATION
  Report Type: 
  Country: None (occurrence: None)
  Receive Date: 20100803
  Receipt Date: 20100729
  Transmission Date: 20110219
  Serious: Yes (Other)
  Sender: FDA-Public Use
  Company Number: MX-ROCHE-717182

PATIENT
  Sex: Female
  Weight: 73 kg

DRUGS (16)
  1. TOCILIZUMAB [Suspect]
     Indication: RHEUMATOID ARTHRITIS
     Dosage: LAST DOSE PRIOR TO SAE WAS 23 JUNE 2010 AND TEMPORARILY DISCONTINUED , FORM :INFUSION
     Route: 042
     Dates: start: 20050817, end: 20100624
  2. BLINDED TOCILIZUMAB [Suspect]
     Indication: RHEUMATOID ARTHRITIS
     Dosage: PATIENT WAS PREVIOUSLY ENROLLED IN STUDY WA17822
     Route: 042
  3. CAPTOPRIL [Concomitant]
     Dates: start: 20011122, end: 20060925
  4. METOPROLOL [Concomitant]
     Dates: start: 20050120
  5. METHOTREXATE [Concomitant]
     Dates: start: 20000117
  6. METHOTREXATE [Concomitant]
     Dates: start: 20020226, end: 20100225
  7. FOLIC ACID [Concomitant]
     Dates: start: 20000117
  8. FOLIC ACID [Concomitant]
     Dates: start: 20050304, end: 20100225
  9. CALCIUM [Concomitant]
     Dates: start: 20050719
  10. CELECOXIB [Concomitant]
     Dates: start: 20060411
  11. DICLOFENAC [Concomitant]
     Dates: start: 20070201
  12. PREDNISOLONE [Concomitant]
     Dates: start: 20091026
  13. DIOVAN HCT [Concomitant]
     Dosage: VAISARTAN 160 MG
     Dates: start: 20090225
  14. AMLODIPINE [Concomitant]
     Dates: start: 20090225
  15. SOMALGESIC [Concomitant]
     Dosage: CARISOPRODOL 200 MG
     Dates: start: 20090225
  16. ANAPSIQUE [Concomitant]
     Dosage: TDD:1/2 TAB
     Dates: start: 20100617

REACTIONS (2)
  - GASTROINTESTINAL HAEMORRHAGE [None]
  - INTESTINAL PERFORATION [None]
